FAERS Safety Report 5728459-8 (Version None)
Quarter: 2008Q2

REPORT INFORMATION
  Report Type: 
  Country: None (occurrence: None)
  Receive Date: 20080430
  Receipt Date: 20080102
  Transmission Date: 20081010
  Serious: Yes (Hospitalization, Other)
  Sender: FDA-Public Use
  Company Number: USEN-7AHQ39

PATIENT
  Age: 54 Year
  Sex: Male

DRUGS (4)
  1. DURAPREP [Suspect]
     Indication: PREOPERATIVE CARE
     Dosage: 26 ML, TOPICAL
     Route: 061
  2. SURGICAL DRAPE [Concomitant]
  3. OXYGEN BY CPAP MASK [Concomitant]
  4. ELECTROSURGERY DISPOSABLE PENCIL [Concomitant]

REACTIONS (1)
  - THERMAL BURN [None]
